FAERS Safety Report 22201311 (Version 1)
Quarter: 2023Q2

REPORT INFORMATION
  Report Type: Spontaneous
  Country: US (occurrence: US)
  Receive Date: 20230412
  Receipt Date: 20230412
  Transmission Date: 20230722
  Serious: No
  Sender: FDA-Public Use
  Company Number: US-002147023-NVSC2023US084322

PATIENT
  Sex: Female

DRUGS (1)
  1. TYKERB [Suspect]
     Active Substance: LAPATINIB DITOSYLATE
     Indication: Breast cancer female
     Dosage: 1250 MG, QD
     Route: 048
     Dates: start: 202006

REACTIONS (3)
  - Urticaria [Unknown]
  - Diarrhoea [Unknown]
  - Epistaxis [Unknown]
